FAERS Safety Report 13545879 (Version 1)
Quarter: 2017Q2

REPORT INFORMATION
  Report Type: Spontaneous
  Country: FR (occurrence: FR)
  Receive Date: 20170515
  Receipt Date: 20170515
  Transmission Date: 20170830
  Serious: Yes (Other)
  Sender: FDA-Public Use
  Company Number: FR-TEVA-766420ROM

PATIENT
  Age: 53 Year
  Sex: Male

DRUGS (7)
  1. GLUCOPHAGE 1000 MG [Concomitant]
     Indication: DIABETES MELLITUS
     Dosage: 2 DOSAGE FORMS DAILY;
  2. SPASFON (PHLOROGLUCINOL, TRIMETHYLPHLOROGLUCINOL) [Suspect]
     Active Substance: PHLOROGLUCINOL\1,3,5-TRIMETHOXYBENZENE
     Dates: start: 20120917
  3. TIORFAN [Suspect]
     Active Substance: RACECADOTRIL
     Dates: start: 20120917
  4. PARACETAMOL [Suspect]
     Active Substance: ACETAMINOPHEN
     Route: 065
     Dates: start: 20120917
  5. NEBIVOLOL. [Concomitant]
     Active Substance: NEBIVOLOL
     Indication: HYPERTENSION
  6. AMOXICILLINE ARROW 500 MG [Suspect]
     Active Substance: AMOXICILLIN
     Indication: TONSILLITIS
     Dosage: 6 DOSAGE FORMS DAILY;
     Route: 048
     Dates: start: 20120917, end: 20120922
  7. COVERAM [Concomitant]
     Active Substance: AMLODIPINE\PERINDOPRIL
     Indication: HYPERTENSION

REACTIONS (2)
  - Balanoposthitis [Recovered/Resolved with Sequelae]
  - Penile oedema [Recovered/Resolved with Sequelae]

NARRATIVE: CASE EVENT DATE: 201209
